FAERS Safety Report 9192104 (Version 3)
Quarter: 2013Q3

REPORT INFORMATION
  Report Type: Spontaneous
  Country: US (occurrence: US)
  Receive Date: 20130327
  Receipt Date: 20130731
  Transmission Date: 20140515
  Serious: No
  Sender: FDA-Public Use
  Company Number: US-009507513-1303USA012966

PATIENT
  Age: 21 Year
  Sex: Female
  Weight: 110.2 kg

DRUGS (2)
  1. NEXPLANON [Suspect]
     Indication: CONTRACEPTION
     Dosage: LEFT ARM
     Route: 059
     Dates: start: 20120925, end: 20130506
  2. NEXPLANON [Suspect]
     Dosage: RIGHT ARM
     Route: 059
     Dates: start: 2013

REACTIONS (9)
  - Sensation of foreign body [Recovered/Resolved]
  - Device difficult to use [Recovered/Resolved]
  - Device dislocation [Recovered/Resolved]
  - Device deployment issue [Recovered/Resolved]
  - Limb discomfort [Recovered/Resolved]
  - Application site hypoaesthesia [Unknown]
  - Application site discomfort [Not Recovered/Not Resolved]
  - Implant site irritation [Not Recovered/Not Resolved]
  - Pruritus [Recovered/Resolved]
